FAERS Safety Report 10489731 (Version 3)
Quarter: 2014Q4

REPORT INFORMATION
  Report Type: Spontaneous
  Country: CH (occurrence: CH)
  Receive Date: 20141002
  Receipt Date: 20141107
  Transmission Date: 20150528
  Serious: Yes (Hospitalization, Other)
  Sender: FDA-Public Use
  Company Number: CH-ELI_LILLY_AND_COMPANY-CH201409010023

PATIENT
  Age: 81 Year
  Sex: Female

DRUGS (2)
  1. FORSTEO [Suspect]
     Active Substance: TERIPARATIDE
     Indication: OSTEOPOROTIC FRACTURE
     Dosage: UNK, UNKNOWN
     Route: 065
     Dates: start: 201406
  2. FORSTEO [Suspect]
     Active Substance: TERIPARATIDE
     Dosage: UNK, UNKNOWN
     Route: 058
     Dates: end: 201409

REACTIONS (20)
  - Normochromic normocytic anaemia [Unknown]
  - Dehydration [Recovered/Resolved]
  - Hyponatraemia [Recovered/Resolved]
  - Urinary tract infection [Unknown]
  - Faecaloma [Unknown]
  - Asthenia [Unknown]
  - Gamma-glutamyltransferase increased [Unknown]
  - Haemorrhoids [Unknown]
  - Acute kidney injury [Recovered/Resolved]
  - Dizziness [Recovered/Resolved]
  - Hypokalaemia [Recovered/Resolved]
  - Cognitive disorder [Unknown]
  - Gait disturbance [Unknown]
  - Diarrhoea [Unknown]
  - Hypercalcaemia [Recovered/Resolved]
  - International normalised ratio increased [Unknown]
  - Confusional state [Not Recovered/Not Resolved]
  - Hypophosphataemia [Recovered/Resolved]
  - Romberg test positive [Unknown]
  - Hypotension [Unknown]
